FAERS Safety Report 6645237-6 (Version None)
Quarter: 2010Q1

REPORT INFORMATION
  Report Type: 
  Country: None (occurrence: None)
  Receive Date: 20100322
  Receipt Date: 20090916
  Transmission Date: 20100710
  Serious: Yes (Death)
  Sender: FDA-Public Use
  Company Number: PHEH2009US18957

PATIENT
  Sex: Male

DRUGS (9)
  1. GLEEVEC [Suspect]
     Indication: CHRONIC MYELOID LEUKAEMIA
     Dosage: 400 MG, DAILY
     Route: 048
     Dates: start: 20090701
  2. ZOFRAN [Concomitant]
  3. COUMADIN [Concomitant]
  4. PERCOCET [Concomitant]
  5. LISINOPRIL [Concomitant]
  6. LIPITOR [Concomitant]
  7. COREG [Concomitant]
  8. ASPIRIN [Concomitant]
  9. ALLOPURINOL [Concomitant]

REACTIONS (1)
  - DEATH [None]
